FAERS Safety Report 6065969-0 (Version None)
Quarter: 2009Q1

REPORT INFORMATION
  Report Type: 
  Country: None (occurrence: None)
  Receive Date: 20090205
  Receipt Date: 20090203
  Transmission Date: 20090719
  Serious: Yes (Death)
  Sender: FDA-Public Use
  Company Number: PL-BRISTOL-MYERS SQUIBB COMPANY-14474001

PATIENT
  Age: 49 Year
  Sex: Female
  Weight: 80 kg

DRUGS (1)
  1. SPRYCEL [Suspect]
     Indication: CHRONIC MYELOID LEUKAEMIA
     Dosage: STARTED WITH 80 MG, THEN INCREASED TO 100 AND 140MG(70MG BID)FROM 19-NOV-2008
     Route: 048
     Dates: start: 20070327, end: 20090108

REACTIONS (1)
  - DEATH [None]
